FAERS Safety Report 5527591-1 (Version None)
Quarter: 2007Q4

REPORT INFORMATION
  Report Type: 
  Country: None (occurrence: None)
  Receive Date: 20071128
  Receipt Date: 20071119
  Transmission Date: 20080405
  Serious: Yes (Other)
  Sender: FDA-Public Use
  Company Number: US-ELI_LILLY_AND_COMPANY-US200711004937

PATIENT
  Sex: Female

DRUGS (1)
  1. FORTEO [Suspect]
     Indication: OSTEOPENIA
     Dosage: UNK, UNK
     Dates: start: 20060101

REACTIONS (3)
  - FOOT FRACTURE [None]
  - LARYNGITIS [None]
  - OSTEONECROSIS [None]
